FAERS Safety Report 14027608 (Version 9)
Quarter: 2018Q4

REPORT INFORMATION
  Report Type: Spontaneous
  Country: US (occurrence: US)
  Receive Date: 20170929
  Receipt Date: 20181120
  Transmission Date: 20190204
  Serious: No
  Sender: FDA-Public Use
  Company Number: US-PFIZER INC-2017415511

PATIENT
  Age: 81 Year
  Sex: Female
  Weight: 63 kg

DRUGS (11)
  1. ISOSORBIDE MONONITRATE. [Concomitant]
     Active Substance: ISOSORBIDE MONONITRATE
     Indication: TACHYCARDIA
     Dosage: 30 MG, 1X/DAY (ONCE AT NIGHT)
  2. KEPPRA [Concomitant]
     Active Substance: LEVETIRACETAM
     Indication: SEIZURE
     Dosage: 500 MG, 2X/DAY (ONCE EVERY 12 HOURS)
  3. METOPROLOL SUCCINATE. [Concomitant]
     Active Substance: METOPROLOL SUCCINATE
     Indication: TACHYCARDIA
     Dosage: 25 MG, ONCE DAILY
  4. LASIX [Concomitant]
     Active Substance: FUROSEMIDE
     Dosage: 40 MG, ONE IN THE MORNING AND HALF AT 1/2 NOON
  5. ASPIRIN. [Concomitant]
     Active Substance: ASPIRIN
     Dosage: 81 MG, DAILY
  6. POTASSIUM [Concomitant]
     Active Substance: POTASSIUM
     Dosage: 99 MG, 1X/DAY (ONCE IN THE MORNING)
  7. XELJANZ XR [Suspect]
     Active Substance: TOFACITINIB CITRATE
     Indication: RHEUMATOID ARTHRITIS
     Dosage: 11 MG, DAILY
     Route: 048
     Dates: start: 20170831, end: 20171204
  8. XELJANZ XR [Suspect]
     Active Substance: TOFACITINIB CITRATE
     Dosage: 20 MG, ONCE DAILY
  9. VITAMIN D3 [Concomitant]
     Active Substance: CHOLECALCIFEROL
     Dosage: UNK
  10. RED YEAST RICE [Concomitant]
     Active Substance: DIETARY SUPPLEMENT
     Indication: BLOOD CHOLESTEROL ABNORMAL
     Dosage: UNK
  11. SULFASALAZINE. [Concomitant]
     Active Substance: SULFASALAZINE
     Indication: RHEUMATOID ARTHRITIS
     Dosage: 500 MG, TWICE DAILY (2 AM, 2 PM)

REACTIONS (27)
  - Nausea [Unknown]
  - Condition aggravated [Unknown]
  - Asthenia [Unknown]
  - Vulvovaginal pruritus [Unknown]
  - Erythema [Unknown]
  - Dyspnoea [Unknown]
  - Malaise [Unknown]
  - Pain of skin [Unknown]
  - Cough [Unknown]
  - Disturbance in attention [Unknown]
  - Nasopharyngitis [Unknown]
  - Hypersensitivity [Unknown]
  - Pruritus [Unknown]
  - Feeling abnormal [Unknown]
  - Sinus disorder [Unknown]
  - Tinnitus [Unknown]
  - Mouth swelling [Unknown]
  - Swollen tongue [Unknown]
  - Dizziness [Unknown]
  - Myalgia [Unknown]
  - Pyrexia [Unknown]
  - Wheezing [Not Recovered/Not Resolved]
  - Urticaria [Unknown]
  - Lip swelling [Unknown]
  - Anal pruritus [Unknown]
  - Back pain [Unknown]
  - Product use issue [Unknown]

NARRATIVE: CASE EVENT DATE: 2017
